FAERS Safety Report 22335230 (Version 2)
Quarter: 2023Q2

REPORT INFORMATION
  Report Type: Report from Study
  Country: US (occurrence: US)
  Receive Date: 20230518
  Receipt Date: 20230627
  Transmission Date: 20230721
  Serious: Yes (Death, Other)
  Sender: FDA-Public Use
  Company Number: US-ACADIA PHARMACEUTICALS INC.-ACA-2023-PIM-001763

PATIENT
  Sex: Female

DRUGS (14)
  1. NUPLAZID [Suspect]
     Active Substance: PIMAVANSERIN TARTRATE
     Indication: Parkinson^s disease psychosis
     Dosage: 34 MILLIGRAM, QD
     Route: 048
     Dates: start: 20230412, end: 20230427
  2. ACETAMINOPHEN [Concomitant]
     Active Substance: ACETAMINOPHEN
     Indication: Pain
     Dosage: 650 MG, GIVE 2 TABLETS 325MG  BY MOUTH EVERY 6 HOURS
     Route: 048
     Dates: start: 20230405
  3. ASPIRIN [Concomitant]
     Active Substance: ASPIRIN
     Indication: Cardiac disorder
     Dosage: 81 MILLIGRAM, GIVE 1 TABLET BY MOUTH ONE TIME  DAY
     Route: 048
     Dates: start: 20230328
  4. ATIVAN [Concomitant]
     Active Substance: LORAZEPAM
     Indication: Anxiety
     Dosage: 1 MILLIGRAM, GIVE ONE TABLET BY MOUTH EVERY 4 HOURS AS NEEDED
     Route: 048
     Dates: start: 20230420
  5. ATIVAN [Concomitant]
     Active Substance: LORAZEPAM
     Indication: Agitation
  6. CARBIDOPA\LEVODOPA [Concomitant]
     Active Substance: CARBIDOPA\LEVODOPA
     Indication: Parkinson^s disease
     Dosage: 25-100 MG, TABLET BY MOUTH FOUR TIMES A DAY
     Route: 048
     Dates: start: 20230330
  7. DOCUSATE SODIUM [Concomitant]
     Active Substance: DOCUSATE SODIUM
     Indication: Constipation
     Dosage: 250 MILLIGRAM, 1 CAPSULE BY MOUTH ONE TIME A DAY
     Route: 048
     Dates: start: 20230328
  8. GABAPENTIN [Concomitant]
     Active Substance: GABAPENTIN
     Indication: Neuropathy peripheral
     Dosage: 100 MILLIGRAM, ONE CAPSULE BY MOUTH TWO TIMES A DAY
     Route: 048
     Dates: start: 20230418
  9. GABAPENTIN [Concomitant]
     Active Substance: GABAPENTIN
     Dosage: 300 MILLIGRAM, ONE CAPSULE BY MOUTH TWO TIMES A DAY
     Route: 048
     Dates: start: 20230418
  10. HYZAAR [Concomitant]
     Active Substance: HYDROCHLOROTHIAZIDE\LOSARTAN POTASSIUM
     Indication: Hypertension
     Dosage: 100-12.5 MG, ONE TABLET BY MOUTH 1 TIME A DAY
     Route: 048
     Dates: start: 20230328
  11. MAGNESIUM OXIDE [Concomitant]
     Active Substance: MAGNESIUM OXIDE
     Indication: Supplementation therapy
     Dosage: 250 MILLIGRAM, 1 TABLET BY MOUTH THREE TIMES A DAY
     Route: 048
     Dates: start: 20230327
  12. MELATONIN [Concomitant]
     Active Substance: MELATONIN
     Indication: Insomnia
     Dosage: 5 MILLIGRAM, 2 TABLET ONE TIME A DAY
     Route: 060
     Dates: start: 20230327
  13. SYNTHROID [Concomitant]
     Active Substance: LEVOTHYROXINE SODIUM
     Indication: Thyroid disorder
     Dosage: 75 MCG, ONE TABLET ONE TIME A DAY
     Route: 048
     Dates: start: 20230328
  14. TOPROL XL [Concomitant]
     Active Substance: METOPROLOL SUCCINATE
     Indication: Hypertension
     Dosage: 100 MILLIGRAM, QOD
     Route: 048
     Dates: start: 20230328

REACTIONS (1)
  - Parkinson^s disease [Recovered/Resolved]
